FAERS Safety Report 6970424-7 (Version None)
Quarter: 2010Q3

REPORT INFORMATION
  Report Type: 
  Country: None (occurrence: None)
  Receive Date: 20100908
  Receipt Date: 20100903
  Transmission Date: 20110219
  Serious: Yes (Hospitalization)
  Sender: FDA-Public Use
  Company Number: FR-SANOFI-AVENTIS-2010SA033070

PATIENT
  Age: 77 Year
  Sex: Male

DRUGS (5)
  1. DEPAKENE [Suspect]
     Indication: EPILEPSY
     Route: 048
     Dates: start: 20010901
  2. LASIX [Suspect]
     Dates: end: 20100214
  3. LASIX [Suspect]
     Route: 048
     Dates: start: 20100215, end: 20100225
  4. ZYLORIC ^GLAXO WELLCOME^ [Suspect]
     Route: 048
  5. DIAMICRON [Suspect]
     Route: 048

REACTIONS (3)
  - BLOOD CREATININE INCREASED [None]
  - RENAL FAILURE [None]
  - TUBULOINTERSTITIAL NEPHRITIS [None]
